FAERS Safety Report 12628678 (Version 1)
Quarter: 2016Q3

REPORT INFORMATION
  Report Type: Spontaneous
  Country: US (occurrence: US)
  Receive Date: 20160808
  Receipt Date: 20160808
  Transmission Date: 20161109
  Serious: No
  Sender: FDA-Public Use
  Company Number: US-JAZZ-2016-US-004463

PATIENT
  Sex: Female

DRUGS (29)
  1. VECTICAL [Concomitant]
     Active Substance: CALCITRIOL
  2. XYREM [Suspect]
     Active Substance: SODIUM OXYBATE
     Dosage: 3 G, BID
     Route: 048
     Dates: start: 2015, end: 2016
  3. VESICARE [Concomitant]
     Active Substance: SOLIFENACIN SUCCINATE
  4. CALTRATE [Concomitant]
     Active Substance: CALCIUM CARBONATE
  5. PROAIR HFA [Concomitant]
     Active Substance: ALBUTEROL SULFATE
  6. RESTASIS [Concomitant]
     Active Substance: CYCLOSPORINE
  7. LUNESTA [Concomitant]
     Active Substance: ESZOPICLONE
  8. METHOTREXATE. [Concomitant]
     Active Substance: METHOTREXATE
  9. XYREM [Suspect]
     Active Substance: SODIUM OXYBATE
     Dosage: 3.75 G, BID
     Route: 048
  10. ADDERALL [Concomitant]
     Active Substance: AMPHETAMINE ASPARTATE\AMPHETAMINE SULFATE\DEXTROAMPHETAMINE SACCHARATE\DEXTROAMPHETAMINE SULFATE
  11. METHOCARBAMOL. [Concomitant]
     Active Substance: METHOCARBAMOL
  12. CRESTOR [Concomitant]
     Active Substance: ROSUVASTATIN CALCIUM
  13. DOXEPIN [Concomitant]
     Active Substance: DOXEPIN
  14. MODAFINIL. [Concomitant]
     Active Substance: MODAFINIL
  15. BACLOFEN. [Concomitant]
     Active Substance: BACLOFEN
  16. CLARITIN [Concomitant]
     Active Substance: LORATADINE
  17. MYRBETRIQ [Concomitant]
     Active Substance: MIRABEGRON
  18. PRAMIPEXOLE. [Concomitant]
     Active Substance: PRAMIPEXOLE
  19. CELEBREX [Concomitant]
     Active Substance: CELECOXIB
  20. FOLIC ACID. [Concomitant]
     Active Substance: FOLIC ACID
  21. REQUIP [Concomitant]
     Active Substance: ROPINIROLE HYDROCHLORIDE
  22. REMICADE [Concomitant]
     Active Substance: INFLIXIMAB
  23. XYREM [Suspect]
     Active Substance: SODIUM OXYBATE
     Indication: SOMNOLENCE
     Dosage: 2.25 G, BID
     Route: 048
     Dates: start: 201512, end: 2015
  24. NEURONTIN [Concomitant]
     Active Substance: GABAPENTIN
  25. ZOLOFT [Concomitant]
     Active Substance: SERTRALINE HYDROCHLORIDE
  26. TYLENOL ARTHRITIS PAIN [Concomitant]
     Active Substance: ACETAMINOPHEN
  27. SUBOXONE [Concomitant]
     Active Substance: BUPRENORPHINE HYDROCHLORIDE\NALOXONE HYDROCHLORIDE
  28. BETAMETHASONE. [Concomitant]
     Active Substance: BETAMETHASONE
  29. ROPINIROLE HCL [Concomitant]
     Active Substance: ROPINIROLE HYDROCHLORIDE

REACTIONS (2)
  - Insomnia [Unknown]
  - Drug ineffective [Unknown]
